FAERS Safety Report 4819152-4 (Version None)
Quarter: 2005Q4

REPORT INFORMATION
  Report Type: 
  Country: None (occurrence: None)
  Receive Date: 20051101
  Receipt Date: 20051018
  Transmission Date: 20060501
  Serious: Yes (Other)
  Sender: FDA-Public Use
  Company Number: 2005RR-00989

PATIENT
  Age: 89 Year
  Sex: Female

DRUGS (6)
  1. FLUOXETINE [Suspect]
     Indication: DEPRESSION
     Dates: start: 20040101
  2. TRAMACET (TRAMADOL) [Suspect]
     Indication: BACK PAIN
     Dosage: QID,
     Dates: start: 20041001, end: 20041112
  3. TRAMACET (PARACETAMOL) [Suspect]
     Indication: BACK PAIN
     Dosage: QID,
     Dates: start: 20041001, end: 20041112
  4. TRIMETHOPRIM TABLET 100MG BP (TRIMETHOPRIM) [Concomitant]
  5. BIFONAZOLE [Concomitant]
  6. DIGOXIN [Concomitant]

REACTIONS (2)
  - DRUG INTERACTION [None]
  - SEROTONIN SYNDROME [None]
